FAERS Safety Report 10915752 (Version 1)
Quarter: 2015Q1

REPORT INFORMATION
  Report Type: Spontaneous
  Country: US (occurrence: US)
  Receive Date: 20150316
  Receipt Date: 20150316
  Transmission Date: 20150721
  Serious: Yes (Hospitalization)
  Sender: FDA-Public Use
  Company Number: US-AUROBINDO-AUR-APL-2015-02140

PATIENT
  Age: 44 Year
  Sex: Male

DRUGS (1)
  1. OXYCODONE [Suspect]
     Active Substance: OXYCODONE
     Indication: BACK PAIN
     Dosage: UNK
     Route: 065

REACTIONS (13)
  - White matter lesion [Recovered/Resolved]
  - Feeling abnormal [Recovered/Resolved]
  - Constricted affect [Recovered/Resolved]
  - Joint hyperextension [Recovered/Resolved]
  - Delirium [Recovered/Resolved]
  - Hypoperfusion [Recovered/Resolved]
  - Slow speech [Recovered/Resolved]
  - Abnormal behaviour [Recovered/Resolved]
  - Insomnia [Recovered/Resolved]
  - Disorientation [Recovered/Resolved]
  - Thinking abnormal [Recovered/Resolved]
  - Leukoencephalopathy [Recovered/Resolved]
  - Drug screen positive [Recovered/Resolved]
